FAERS Safety Report 9516616 (Version 1)
Quarter: 2013Q3

REPORT INFORMATION
  Report Type: Spontaneous
  Country: US (occurrence: US)
  Receive Date: 20130911
  Receipt Date: 20130911
  Transmission Date: 20140515
  Serious: Yes (Hospitalization)
  Sender: FDA-Public Use
  Company Number: US-GLAXOSMITHKLINE-A1041064A

PATIENT
  Sex: Male

DRUGS (1)
  1. COREG [Suspect]
     Indication: HYPERTENSION
     Dosage: 25MG PER DAY
     Route: 065

REACTIONS (3)
  - Cardiac failure congestive [Unknown]
  - Dizziness [Not Recovered/Not Resolved]
  - Abasia [Not Recovered/Not Resolved]
